FAERS Safety Report 4657576-9 (Version None)
Quarter: 2005Q2

REPORT INFORMATION
  Report Type: 
  Country: None (occurrence: None)
  Receive Date: 20050405
  Receipt Date: 20040218
  Transmission Date: 20051028
  Serious: Yes (Hospitalization)
  Sender: FDA-Public Use
  Company Number: 2003040258

PATIENT
  Age: 71 Year
  Sex: Male

DRUGS (5)
  1. ZIPRASIDONE HCL [Suspect]
     Indication: AGITATION
     Dosage: 20 MG (EVERY NIGHT), ORAL
     Route: 048
     Dates: start: 20030701, end: 20030901
  2. DONEPEZIL HYDROCHLORIDE [Concomitant]
  3. METOPROLOL [Concomitant]
  4. ALL OTHER THERAPEUTIC PRODUCTS [Concomitant]
  5. ENALAPRIL [Concomitant]

REACTIONS (1)
  - HEART RATE DECREASED [None]
